FAERS Safety Report 5220531-4 (Version None)
Quarter: 2007Q1

REPORT INFORMATION
  Report Type: 
  Country: None (occurrence: None)
  Receive Date: 20070125
  Receipt Date: 20070125
  Transmission Date: 20070707
  Serious: Yes (Other)
  Sender: FDA-Public Use
  Company Number: None

PATIENT
  Sex: Male

DRUGS (1)
  1. LYRICA [Suspect]
     Indication: NEUROPATHY PERIPHERAL
     Dosage: 50 MG TOOK 2 CAPSUKES BY MOUTH
     Route: 048

REACTIONS (6)
  - ABNORMAL DREAMS [None]
  - DISORIENTATION [None]
  - FEELING ABNORMAL [None]
  - HYPOAESTHESIA [None]
  - SOMNOLENCE [None]
  - VISION BLURRED [None]
